FAERS Safety Report 18282887 (Version 1)
Quarter: 2020Q3

REPORT INFORMATION
  Report Type: Spontaneous
  Country: US (occurrence: US)
  Receive Date: 20200918
  Receipt Date: 20200918
  Transmission Date: 20201103
  Serious: No
  Sender: FDA-Public Use
  Company Number: None

PATIENT
  Age: 74 Year
  Sex: Male
  Weight: 78.5 kg

DRUGS (22)
  1. CHLOLECALCIFEROL [Concomitant]
     Dates: start: 20200915, end: 20200917
  2. METFORMIN [Concomitant]
     Active Substance: METFORMIN HYDROCHLORIDE
     Dates: start: 20200915, end: 20200917
  3. CLOPIDOGREL [Concomitant]
     Active Substance: CLOPIDOGREL BISULFATE
     Dates: start: 20200915, end: 20200916
  4. DEXAMETHASONE ORAL [Concomitant]
     Active Substance: DEXAMETHASONE
     Dates: start: 20200916, end: 20200917
  5. RIVAROXABAN [Concomitant]
     Active Substance: RIVAROXABAN
     Dates: start: 20200915, end: 20200916
  6. ATORVASTATIN [Concomitant]
     Active Substance: ATORVASTATIN
     Dates: start: 20200915, end: 20200917
  7. FAMOTIDINE ORAL [Concomitant]
     Dates: start: 20200915, end: 20200915
  8. ONDANSETRON [Concomitant]
     Active Substance: ONDANSETRON
     Dates: start: 20200915, end: 20200917
  9. PANTOPRAZOLE [Concomitant]
     Active Substance: PANTOPRAZOLE
     Dates: start: 20200915, end: 20200917
  10. PROPOFOL. [Concomitant]
     Active Substance: PROPOFOL
     Dates: start: 20200915, end: 20200915
  11. SITAGLIPTIN [Concomitant]
     Active Substance: SITAGLIPTIN
     Dates: start: 20200917, end: 20200917
  12. FENTANYL. [Concomitant]
     Active Substance: FENTANYL
     Dates: start: 20200915, end: 20200915
  13. VANCOMYCIN IV [Concomitant]
     Active Substance: VANCOMYCIN HYDROCHLORIDE
     Dates: start: 20200915, end: 20200915
  14. BENAZEPRIL?HYDROCHLOROTHIAZIDE [Concomitant]
     Dates: start: 20200915, end: 20200917
  15. DOCUSATE [Concomitant]
     Active Substance: DOCUSATE
     Dates: start: 20200915, end: 20200917
  16. HYDROCODONE\APAP [Concomitant]
     Active Substance: ACETAMINOPHEN\HYDROCODONE
     Dates: start: 20200915, end: 20200917
  17. MORPHINE [Concomitant]
     Active Substance: MORPHINE
     Dates: start: 20200915, end: 20200917
  18. FLUZONE HIGH?DOSE NOS [Concomitant]
     Active Substance: INFLUENZA A VIRUS A/CALIFORNIA/7/2009 X-179A (H1N1) ANTIGEN (FORMALDEHYDE INACTIVATED)\INFLUENZA A VIRUS A/VICTORIA/210/2009 X-187 (H3N2) ANTIGEN (FORMALDEHYDE INACTIVATED)\INFLUENZA B VIRUS B/BRISBANE/60/2008 ANTIGEN (FORMALDEHYDE INACTIVATED)
     Dates: start: 20200911, end: 20200911
  19. CEFAZOLIN [Suspect]
     Active Substance: CEFAZOLIN
     Indication: PROPHYLAXIS
     Dosage: ?          OTHER FREQUENCY:ONCE PRE?OP;?
     Route: 042
     Dates: start: 20200915, end: 20200915
  20. ATENOLOL. [Concomitant]
     Active Substance: ATENOLOL
     Dates: start: 20200915, end: 20200917
  21. INSULIN ASPAR [Concomitant]
     Dates: start: 20200915, end: 20200917
  22. CELECOXIB. [Concomitant]
     Active Substance: CELECOXIB
     Dates: start: 20200915, end: 20200915

REACTIONS (1)
  - Thrombocytopenia [None]

NARRATIVE: CASE EVENT DATE: 20200915
